FAERS Safety Report 5206664-7 (Version None)
Quarter: 2007Q1

REPORT INFORMATION
  Report Type: 
  Country: None (occurrence: None)
  Receive Date: 20070109
  Receipt Date: 20070108
  Transmission Date: 20070707
  Serious: Yes (Hospitalization)
  Sender: FDA-Public Use
  Company Number: 230914

PATIENT
  Age: 66 Year
  Sex: Male

DRUGS (3)
  1. MABTHERA(RITUXIMAB) CONC FOR SOLUTION FOR INFUSION [Suspect]
     Indication: MANTLE CELL LYMPHOMA
     Dates: start: 20060907
  2. PIPERACILLIN SODIUM [Concomitant]
  3. COMBACTAM (SULBACTAM SODIUM) [Concomitant]

REACTIONS (1)
  - PULMONARY EMBOLISM [None]
